FAERS Safety Report 5345060-9 (Version None)
Quarter: 2007Q2

REPORT INFORMATION
  Report Type: 
  Country: None (occurrence: None)
  Receive Date: 20070426
  Receipt Date: 20061212
  Transmission Date: 20071010
  Serious: Yes (Hospitalization)
  Sender: FDA-Public Use
  Company Number: CIP06002926

PATIENT
  Age: 43 Year
  Sex: Female
  Weight: 51.7 kg

DRUGS (1)
  1. MACROBID [Suspect]
     Indication: CYSTITIS
     Dosage: 100 MG, 2/DAY, ORAL
     Route: 048
     Dates: start: 20061110, end: 20061117

REACTIONS (6)
  - HYPOAESTHESIA [None]
  - MALAISE [None]
  - NAUSEA [None]
  - NEUROPATHY PERIPHERAL [None]
  - PAIN IN EXTREMITY [None]
  - PARAESTHESIA [None]
